FAERS Safety Report 6823181-9 (Version None)
Quarter: 2010Q3

REPORT INFORMATION
  Report Type: 
  Country: None (occurrence: None)
  Receive Date: 20100708
  Receipt Date: 20100629
  Transmission Date: 20110219
  Serious: Yes (Hospitalization)
  Sender: FDA-Public Use
  Company Number: DE-ELI_LILLY_AND_COMPANY-DE201007000038

PATIENT
  Age: 64 Year
  Sex: Male
  Weight: 71 kg

DRUGS (2)
  1. ALIMTA [Suspect]
     Indication: PLEURAL MESOTHELIOMA
     Dosage: UNK, UNKNOWN
     Route: 042
     Dates: start: 20100414
  2. CISPLATIN [Concomitant]
     Indication: PLEURAL MESOTHELIOMA
     Route: 042
     Dates: start: 20100414

REACTIONS (1)
  - HICCUPS [None]
